FAERS Safety Report 8891129 (Version 1)
Quarter: 2012Q4

REPORT INFORMATION
  Report Type: 
  Country: DE (occurrence: NL)
  Receive Date: 20121107
  Receipt Date: 20121107
  Transmission Date: 20130627
  Serious: Yes (Other)
  Sender: FDA-Public Use
  Company Number: NL-FRI-1000027338

PATIENT
  Age: 55 Year
  Sex: Male

DRUGS (4)
  1. ROFLUMILAST [Suspect]
     Indication: CHRONIC OBSTRUCTIVE PULMONARY DISEASE
     Dosage: 500 mcg
     Route: 048
     Dates: start: 20101211
  2. ROFLUMILAST [Suspect]
     Indication: CHRONIC OBSTRUCTIVE PULMONARY DISEASE
     Dosage: 500 mcg
     Route: 048
     Dates: start: 20111230, end: 20120113
  3. PREDNISOLONE [Concomitant]
     Dosage: according to schedule
     Route: 048
  4. OXYGEN [Concomitant]
     Route: 055

REACTIONS (7)
  - Suicidal ideation [Unknown]
  - Depressed mood [Unknown]
  - Back pain [Unknown]
  - Asthenia [Unknown]
  - Myalgia [Unknown]
  - Anxiety [Unknown]
  - Muscular weakness [Unknown]
